FAERS Safety Report 10031297 (Version 3)
Quarter: 2014Q2

REPORT INFORMATION
  Report Type: Report from Study
  Country: US (occurrence: US)
  Receive Date: 20140324
  Receipt Date: 20140415
  Transmission Date: 20141212
  Serious: Yes (Other)
  Sender: FDA-Public Use
  Company Number: US-BRISTOL-MYERS SQUIBB COMPANY-20108023

PATIENT
  Age: 59 Year
  Sex: Female
  Weight: 106.12 kg

DRUGS (17)
  1. ABATACEPT SUBQ INJECTION 125MG/ML [Suspect]
     Indication: RHEUMATOID ARTHRITIS
     Dosage: 1DF:125MG/ML, DISP:12 SYN, RFL: 1
     Route: 058
  2. URSODIOL [Concomitant]
     Dosage: CAPS.DISP: 450 CAP, RFL: 4
     Route: 048
  3. CEPHALEXIN [Concomitant]
     Dosage: CAPS.DISP: 40CAP, RFL:1
     Route: 048
  4. INSULIN [Concomitant]
     Dosage: INSULIN INFUSION PUMP,DISP: 105 DEVICE, RFI: 3
  5. PREDNISONE [Concomitant]
     Dosage: TABS.DISP: 120 TAB?5MG TABS,AS NEEDED,DISP: 30 TAB
     Route: 048
  6. ENALAPRIL MALEATE [Concomitant]
     Dosage: TABS.DISP: 90 TAB
     Route: 048
  7. SIMVASTATIN [Concomitant]
     Dosage: TABS. DISP: 90 TAB, RFI: 1.
     Route: 048
  8. NOVOLOG [Concomitant]
     Dosage: 1DF:100 UNIT/ML,120UNIS/DAY,DISP: 11 VIAL, RFL: 3
     Route: 058
  9. HYDROXYZINE HCL [Concomitant]
     Dosage: TABS.DISP: 60 TAB,RFL: 5.
     Route: 048
  10. DIFLUCAN [Concomitant]
     Dosage: DISP: 2 TAB
     Route: 048
  11. LASIX [Concomitant]
     Dosage: AS NEEDED
     Route: 048
  12. METOLAZONE [Concomitant]
     Dosage: TABS. AS NEEDED
     Route: 048
  13. VICODIN [Concomitant]
     Dosage: 1DF:5-500MG,1UPTO 4X/DAY, LIMIT 120/MONTH,DISP:120TAB,RFL:5
  14. DOXEPIN HCL [Concomitant]
     Dosage: DISP: 180 CAP, RFL: 3
     Route: 048
  15. POTASSIUM CHLORIDE [Concomitant]
     Indication: POLYURIA
     Dosage: CR. 2 TABS 2-3 DAYS PER WEEK,DISP:90 TAB, RFL: 1
     Route: 048
  16. CLINDAMYCIN PHOSPHATE [Concomitant]
     Dosage: 1% EX LOTN,DISP:240 GIN, RFL:1
  17. DONNATAL [Concomitant]
     Dosage: AS NEEDED,DISP: 40 TABS, RFL: 1
     Route: 048

REACTIONS (2)
  - Liver disorder [Unknown]
  - Abscess limb [Unknown]
